FAERS Safety Report 20335808 (Version 8)
Quarter: 2022Q4

REPORT INFORMATION
  Report Type: Report from Study
  Country: GR (occurrence: GR)
  Receive Date: 20220114
  Receipt Date: 20221118
  Transmission Date: 20230112
  Serious: Yes (Other)
  Sender: FDA-Public Use
  Company Number: GR-GLAXOSMITHKLINE-GR2022GSK004621

PATIENT

DRUGS (29)
  1. BELANTAMAB MAFODOTIN [Suspect]
     Active Substance: BELANTAMAB MAFODOTIN
     Indication: Plasma cell myeloma
     Dosage: 165 MG, CYC
     Route: 042
     Dates: start: 20211101, end: 20211101
  2. BELANTAMAB MAFODOTIN [Suspect]
     Active Substance: BELANTAMAB MAFODOTIN
     Dosage: 125.4 MG, CYC
     Route: 042
     Dates: start: 20211129, end: 20220124
  3. BELANTAMAB MAFODOTIN [Suspect]
     Active Substance: BELANTAMAB MAFODOTIN
     Dosage: 192.20 MG, CYC
     Route: 042
     Dates: start: 20220808
  4. POMALIDOMIDE [Suspect]
     Active Substance: POMALIDOMIDE
     Indication: Plasma cell myeloma
     Dosage: 4 MG, CYC
     Route: 048
     Dates: start: 20211101, end: 20211121
  5. POMALIDOMIDE [Suspect]
     Active Substance: POMALIDOMIDE
     Dosage: 4 MG, CYC
     Route: 048
     Dates: start: 20211129, end: 20211219
  6. POMALIDOMIDE [Suspect]
     Active Substance: POMALIDOMIDE
     Dosage: 3 MG, CYC
     Route: 048
     Dates: start: 20220124, end: 20220213
  7. POMALIDOMIDE [Suspect]
     Active Substance: POMALIDOMIDE
     Dosage: 2 MG, CYC
     Route: 048
     Dates: start: 20220808, end: 20220828
  8. POMALIDOMIDE [Suspect]
     Active Substance: POMALIDOMIDE
     Dosage: 5 MG, CYC
     Route: 048
     Dates: start: 20220905
  9. DEXAMETHASONE [Suspect]
     Active Substance: DEXAMETHASONE
     Indication: Plasma cell myeloma
     Dosage: 20 MG, CYC
     Route: 048
     Dates: start: 20211101, end: 20211122
  10. DEXAMETHASONE [Suspect]
     Active Substance: DEXAMETHASONE
     Dosage: 20 MG, CYC
     Route: 048
     Dates: start: 20211129, end: 20211220
  11. DEXAMETHASONE [Suspect]
     Active Substance: DEXAMETHASONE
     Dosage: 20 MG, CYC
     Route: 048
     Dates: start: 20211227, end: 20220117
  12. DEXAMETHASONE [Suspect]
     Active Substance: DEXAMETHASONE
     Dosage: 20 MG, CYC
     Route: 048
     Dates: start: 20220124, end: 20220214
  13. DEXAMETHASONE [Suspect]
     Active Substance: DEXAMETHASONE
     Dosage: 20 MG, CYC
     Route: 048
     Dates: start: 20220808, end: 20220829
  14. DEXAMETHASONE [Suspect]
     Active Substance: DEXAMETHASONE
     Dosage: 20 MG, CYC (DAY 1)
     Route: 048
     Dates: start: 20220905
  15. POLYVINYL ALCOHOL\POVIDONE [Concomitant]
     Active Substance: POLYVINYL ALCOHOL\POVIDONE
     Indication: Dry eye
     Dosage: 2 GTT, 5 TIMES PER DAY
     Dates: start: 20211007
  16. EXFORGE [Concomitant]
     Active Substance: AMLODIPINE BESYLATE\VALSARTAN
     Indication: Hypertension
     Dosage: 1 DF, QD (TABLET)
     Route: 048
     Dates: start: 201001
  17. BARACLUDE [Concomitant]
     Active Substance: ENTECAVIR
     Indication: Prophylaxis
     Dosage: 0.5 MG, QD
     Route: 048
     Dates: start: 202101
  18. ASPIRIN [Concomitant]
     Active Substance: ASPIRIN
     Indication: Prophylaxis
     Dosage: 100 MG, QD
     Route: 048
     Dates: start: 20200731
  19. VALACYCLOVIR [Concomitant]
     Active Substance: VALACYCLOVIR HYDROCHLORIDE
     Indication: Antiviral prophylaxis
     Dosage: 500 MG, Q12H
     Route: 048
     Dates: start: 20200630
  20. OMEPRAZOLE [Concomitant]
     Active Substance: OMEPRAZOLE
     Indication: Prophylaxis
     Dosage: 1 DF (AMPUOLE), SINGLE
     Route: 042
     Dates: start: 20211101, end: 20211101
  21. OMEPRAZOLE [Concomitant]
     Active Substance: OMEPRAZOLE
     Dosage: 1 DF (AMPUOLE), SINGLE
     Route: 042
     Dates: start: 20211129, end: 20211129
  22. OMEPRAZOLE [Concomitant]
     Active Substance: OMEPRAZOLE
     Dosage: 1 DF (AMPUOLE), SINGLE
     Route: 042
     Dates: start: 20211227, end: 20211227
  23. OMEPRAZOLE [Concomitant]
     Active Substance: OMEPRAZOLE
     Dosage: 1 DF (AMPUOLE), SINGLE
     Route: 042
     Dates: start: 20220124, end: 20220124
  24. OMEPRAZOLE [Concomitant]
     Active Substance: OMEPRAZOLE
     Dosage: 1 DF (AMPUOLE), SINGLE
     Route: 042
     Dates: start: 20220321, end: 20220321
  25. ONDANSETRON [Concomitant]
     Active Substance: ONDANSETRON
     Indication: Prophylaxis
     Dosage: 1 DF (AMPOULE), SINGLE
     Route: 042
     Dates: start: 20211101, end: 20211101
  26. ACETAMINOPHEN [Concomitant]
     Active Substance: ACETAMINOPHEN
     Indication: Prophylaxis
     Dosage: 2 DF (TABLET), SINGLE
     Route: 048
     Dates: start: 20211101, end: 20211101
  27. LEVOCETIRIZINE [Concomitant]
     Active Substance: LEVOCETIRIZINE
     Indication: Prophylaxis
     Dosage: 1 DF (TABLET), SINGLE
     Route: 048
     Dates: start: 20211101, end: 20211101
  28. LIPITOR [Concomitant]
     Active Substance: ATORVASTATIN CALCIUM
     Indication: Hyperlipidaemia
     Dosage: 10 MG, QD
     Route: 048
     Dates: start: 2010
  29. BISOPROLOL FUMARATE [Concomitant]
     Active Substance: BISOPROLOL FUMARATE
     Indication: Arrhythmia
     Dosage: 2.5 MG, QD
     Route: 048
     Dates: start: 2010

REACTIONS (1)
  - Neutropenia [Recovered/Resolved]

NARRATIVE: CASE EVENT DATE: 20220110
